FAERS Safety Report 5565132-3 (Version None)
Quarter: 2008Q1

REPORT INFORMATION
  Report Type: 
  Country: None (occurrence: None)
  Receive Date: 20071213
  Receipt Date: 20071213
  Transmission Date: 20080703
  Serious: Yes (Life-Threatening, Hospitalization)
  Sender: FDA-Public Use
  Company Number: None

PATIENT
  Sex: Male
  Weight: 108 kg

DRUGS (4)
  1. AVANDAMET [Suspect]
     Indication: TYPE 2 DIABETES MELLITUS
  2. METFORMIN HCL [Suspect]
     Indication: TYPE 2 DIABETES MELLITUS
  3. SIMAVASTATIN [Suspect]
  4. BENAZEPRIL HYDROCHLORIDE [Suspect]

REACTIONS (2)
  - PANCREATITIS ACUTE [None]
  - SPLENIC VEIN THROMBOSIS [None]
